FAERS Safety Report 12540325 (Version 1)
Quarter: 2016Q3

REPORT INFORMATION
  Report Type: Spontaneous
  Country: US (occurrence: None)
  Receive Date: 20160707
  Receipt Date: 20160707
  Transmission Date: 20161109
  Serious: Yes (Hospitalization)
  Sender: FDA-Public Use
  Company Number: None

PATIENT
  Age: 60 Year
  Sex: Male
  Weight: 100 kg

DRUGS (16)
  1. INSULIN GLARGINE [Concomitant]
     Active Substance: INSULIN GLARGINE
  2. DACLATASVIR 60MG BMS [Suspect]
     Active Substance: DACLATASVIR
     Indication: HEPATITIS C
     Route: 048
     Dates: start: 20160105, end: 20160620
  3. LOSARTAN. [Concomitant]
     Active Substance: LOSARTAN
  4. ASPIRIN. [Concomitant]
     Active Substance: ASPIRIN
  5. BUPROPION. [Concomitant]
     Active Substance: BUPROPION
  6. CALCITRIOL. [Concomitant]
     Active Substance: CALCITRIOL
  7. FINASTERIDE. [Concomitant]
     Active Substance: FINASTERIDE
  8. GABAPENTIN. [Concomitant]
     Active Substance: GABAPENTIN
  9. ACYCLOVIR. [Concomitant]
     Active Substance: ACYCLOVIR
  10. TAMSULOSIN [Concomitant]
     Active Substance: TAMSULOSIN
  11. CHLORTHALIDONE. [Concomitant]
     Active Substance: CHLORTHALIDONE
  12. FUROSEMIDE. [Concomitant]
     Active Substance: FUROSEMIDE
  13. INSULIN LISPRO [Concomitant]
     Active Substance: INSULIN LISPRO
  14. SOFOSBUVIR 400MG GILEAD [Suspect]
     Active Substance: SOFOSBUVIR
     Indication: HEPATITIS C
     Route: 048
     Dates: start: 20160105, end: 20160620
  15. ATORVASTATIN [Concomitant]
     Active Substance: ATORVASTATIN
  16. GLIPIZIDE. [Concomitant]
     Active Substance: GLIPIZIDE

REACTIONS (7)
  - Myocardial infarction [None]
  - Dizziness [None]
  - Loss of consciousness [None]
  - Stenosis [None]
  - Blood creatinine increased [None]
  - Injury [None]
  - Dizziness postural [None]

NARRATIVE: CASE EVENT DATE: 20160115
